FAERS Safety Report 19839272 (Version 2)
Quarter: 2021Q4

REPORT INFORMATION
  Report Type: Other
  Country: US (occurrence: US)
  Receive Date: 20210916
  Receipt Date: 20211006
  Transmission Date: 20220303
  Serious: Yes (Hospitalization)
  Sender: FDA-Public Use
  Company Number: US-ROCHE-2908680

PATIENT
  Sex: Female

DRUGS (2)
  1. XELODA [Suspect]
     Active Substance: CAPECITABINE
     Indication: Breast cancer metastatic
     Dosage: 150 MG AND 500MG. TAKE 180 MG (THREE 500 MG + TWO 180 MG TABS) BY MOUTH TWICE FOR 14 DAYS, THEN OFF
     Route: 048
  2. TECENTRIQ [Suspect]
     Active Substance: ATEZOLIZUMAB
     Indication: Product used for unknown indication
     Dosage: ONE TIME ON DAY 1 AND 15
     Route: 041
     Dates: start: 20200114

REACTIONS (2)
  - Gastric disorder [Unknown]
  - Dyspnoea [Unknown]
